FAERS Safety Report 7474753-2 (Version None)
Quarter: 2011Q2

REPORT INFORMATION
  Report Type: 
  Country: None (occurrence: None)
  Receive Date: 20110505
  Receipt Date: 20110421
  Transmission Date: 20111010
  Serious: Yes (Hospitalization, Other)
  Sender: FDA-Public Use
  Company Number: 031134

PATIENT
  Sex: Male
  Weight: 60 kg

DRUGS (5)
  1. LICARBAZEPINE (ZEBINIX) [Suspect]
     Dosage: 800 MG, UP TITRATION
  2. KEPPRA [Suspect]
     Indication: EPILEPSY
     Dosage: 1250 MG BID
     Dates: start: 20090101
  3. BACLOFEN [Concomitant]
  4. LAMOTRIGINE [Suspect]
     Indication: EPILEPSY
     Dosage: 50 MG, QD
     Dates: start: 20100601, end: 20100901
  5. TURIXIN [Concomitant]

REACTIONS (4)
  - LEUKOPENIA [None]
  - THROMBOCYTOPENIA [None]
  - CONVULSION [None]
  - PNEUMONIA STAPHYLOCOCCAL [None]
